FAERS Safety Report 9010837 (Version 1)
Quarter: 2013Q1

REPORT INFORMATION
  Report Type: Report from Study
  Country: US (occurrence: US)
  Receive Date: 20130109
  Receipt Date: 20130109
  Transmission Date: 20140127
  Serious: Yes (Other)
  Sender: FDA-Public Use
  Company Number: US-ASTELLAS-2012US012544

PATIENT
  Sex: Female

DRUGS (2)
  1. ERLOTINIB TABLET [Suspect]
     Indication: NON-SMALL CELL LUNG CANCER
     Dosage: UNK
     Route: 048
  2. IMODIUM [Concomitant]
     Indication: DIARRHOEA
     Dosage: UNK
     Route: 065

REACTIONS (7)
  - Eye operation [Unknown]
  - Nasal dryness [Unknown]
  - Dry mouth [Unknown]
  - Dry eye [Unknown]
  - Cough [Unknown]
  - Diarrhoea [Unknown]
  - Alopecia [Unknown]
